FAERS Safety Report 15946703 (Version 1)
Quarter: 2019Q1

REPORT INFORMATION
  Report Type: Spontaneous
  Country: US (occurrence: US)
  Receive Date: 20190122
  Receipt Date: 20190122
  Transmission Date: 20190417
  Serious: No
  Sender: FDA-Public Use
  Company Number: None

PATIENT
  Age: 72 Year
  Sex: Female
  Weight: 47.63 kg

DRUGS (17)
  1. MAGNESIUM WITH VITAMIN D-3 [Concomitant]
  2. CHOLACOL (BILE SALT) [Concomitant]
  3. SYNTHROID [Concomitant]
     Active Substance: LEVOTHYROXINE SODIUM
  4. CURAMIN (BCM-95 CURCUMIN) [Concomitant]
  5. ESCITALOPRAM [Suspect]
     Active Substance: ESCITALOPRAM OXALATE
  6. VITAMIN D3 [Concomitant]
     Active Substance: CHOLECALCIFEROL
  7. POTASSIUM [Concomitant]
     Active Substance: POTASSIUM
  8. PRIOBIOTIC [Concomitant]
  9. PAPAYA ENZYME WITH CHLOROPHYLL TABLET [Concomitant]
  10. METHYLCOBALAMIN (VITAMIN B-12) [Concomitant]
  11. VITAMIN C WITH BIOFLAVONOIDS [Concomitant]
     Active Substance: ASCORBIC ACID\BIOFLAVONOIDS
  12. ZINC. [Concomitant]
     Active Substance: ZINC
  13. VITAMIN A [Concomitant]
     Active Substance: VITAMIN A
  14. BIOTIN [Concomitant]
     Active Substance: BIOTIN
  15. CALCIUM [Concomitant]
     Active Substance: CALCIUM
  16. MUPIROCIN 2% OINTMENT [Suspect]
     Active Substance: MUPIROCIN
     Indication: PRODUCT USED FOR UNKNOWN INDICATION
     Dosage: ?          QUANTITY:2 % PERCENT;OTHER FREQUENCY:2XDAY FOR 7-10DAYS;?
     Route: 045
     Dates: start: 201710, end: 201711
  17. VITAMIN A [Concomitant]
     Active Substance: VITAMIN A

REACTIONS (3)
  - Nasal dryness [None]
  - Rhinalgia [None]
  - Skin discolouration [None]

NARRATIVE: CASE EVENT DATE: 20171030
